FAERS Safety Report 4488455-8 (Version None)
Quarter: 2004Q4

REPORT INFORMATION
  Report Type: 
  Country: None (occurrence: None)
  Receive Date: 20041026
  Receipt Date: 20041007
  Transmission Date: 20050328
  Serious: Yes (Hospitalization, Other)
  Sender: FDA-Public Use
  Company Number: US_0410106389

PATIENT
  Age: 1 Day
  Sex: Male

DRUGS (5)
  1. HUMALOG [Suspect]
     Dates: end: 20040619
  2. HUMULIN N [Suspect]
     Dates: end: 20040619
  3. PRENATAL VITAMINS [Concomitant]
  4. TYLENOL [Concomitant]
  5. AMBIEN [Concomitant]

REACTIONS (9)
  - BLOOD GLUCOSE INCREASED [None]
  - CAESAREAN SECTION [None]
  - DIABETES COMPLICATING PREGNANCY [None]
  - DRUG EXPOSURE DURING PREGNANCY [None]
  - FOETAL HEART RATE ABNORMAL [None]
  - PHARMACEUTICAL PRODUCT COMPLAINT [None]
  - PREGNANCY INDUCED HYPERTENSION [None]
  - PREMATURE BABY [None]
  - UMBILICAL CORD AROUND NECK [None]
